FAERS Safety Report 16969410 (Version 5)
Quarter: 2025Q4

REPORT INFORMATION
  Report Type: Spontaneous
  Country: US (occurrence: US)
  Receive Date: 20191029
  Receipt Date: 20251104
  Transmission Date: 20260119
  Serious: Yes (Other)
  Sender: UPSHER SMITH LABORATORIES
  Company Number: PR 139874

PATIENT
  Age: 22 Year
  Sex: Female

DRUGS (2)
  1. ISOTRETINOIN [Suspect]
     Active Substance: ISOTRETINOIN
     Indication: Product used for unknown indication
     Dosage: 40 MG, 1X/DAY
     Route: 065
     Dates: start: 20190412, end: 201907
  2. AMNESTEEM [Suspect]
     Active Substance: ISOTRETINOIN
     Indication: Product used for unknown indication
     Dosage: 20 MG, 1X/DAY
     Route: 065
     Dates: start: 20190808, end: 2019

REACTIONS (3)
  - Drug exposure before pregnancy [Unknown]
  - Vomiting [Unknown]
  - Nausea [Unknown]

NARRATIVE: CASE EVENT DATE: 20191001
